FAERS Safety Report 9742291 (Version 1)
Quarter: 2013Q4

REPORT INFORMATION
  Report Type: Report from Study
  Country: RO (occurrence: RO)
  Receive Date: 20131210
  Receipt Date: 20131210
  Transmission Date: 20140711
  Serious: Yes (Hospitalization)
  Sender: FDA-Public Use
  Company Number: RO-BAYER-2013-147235

PATIENT
  Sex: 0

DRUGS (1)
  1. ADALAT CR [Suspect]

REACTIONS (2)
  - Toxicity to various agents [None]
  - Tachycardia [None]
